FAERS Safety Report 22377949 (Version 1)
Quarter: 2023Q2

REPORT INFORMATION
  Report Type: Spontaneous
  Country: NL (occurrence: NL)
  Receive Date: 20230529
  Receipt Date: 20230529
  Transmission Date: 20230721
  Serious: Yes (Hospitalization)
  Sender: FDA-Public Use
  Company Number: None

PATIENT
  Age: 69 Year
  Sex: Male
  Weight: 63 kg

DRUGS (13)
  1. REMIFENTANIL HYDROCHLORIDE [Interacting]
     Active Substance: REMIFENTANIL HYDROCHLORIDE
     Indication: Endoscopic retrograde cholangiopancreatography
     Dosage: BRAND NAME NOT SPECIFIED
     Route: 065
     Dates: start: 20230418
  2. SIMVASTATIN [Interacting]
     Active Substance: SIMVASTATIN
     Indication: Myocardial infarction
     Dosage: 40 MILLIGRAM DAILY; 1 DD 1 TABLET , TABLET FO / BRAND NAME NOT SPECIFIED
     Route: 065
     Dates: start: 20070928, end: 20230419
  3. KETAMINE HYDROCHLORIDE [Interacting]
     Active Substance: KETAMINE HYDROCHLORIDE
     Indication: Endoscopic retrograde cholangiopancreatography
     Dosage: BRAND NAME NOT SPECIFIED
     Route: 065
     Dates: start: 20230418
  4. PROPOFOL [Interacting]
     Active Substance: PROPOFOL
     Indication: Endoscopic retrograde cholangiopancreatography
     Dosage: BRAND NAME NOT SPECIFIED, ONE-OFF DONATION, AT ERCP
     Route: 065
     Dates: start: 20230418
  5. ASPIRIN [Concomitant]
     Active Substance: ASPIRIN
     Indication: Product used for unknown indication
     Dosage: 80 MG (MILLIGRAM), BRAND NAME NOT SPECIFIED
     Route: 065
  6. TRESIBA [Concomitant]
     Active Substance: INSULIN DEGLUDEC
     Indication: Product used for unknown indication
     Dosage: INJVLST 100E/ML PEN 3ML
  7. METFORMIN HYDROCHLORIDE [Concomitant]
     Active Substance: METFORMIN HYDROCHLORIDE
     Indication: Product used for unknown indication
     Dosage: 850 MG (MILLIGRAM), / BRAND NAME NOT SPECIFIED
  8. METOPROLOL [Concomitant]
     Active Substance: METOPROLOL
     Indication: Product used for unknown indication
     Dosage: 50 MG (MILLIGRAM), / BRAND NAME NOT SPECIFIED
  9. OXYCODONE HYDROCHLORIDE [Concomitant]
     Active Substance: OXYCODONE HYDROCHLORIDE
     Indication: Product used for unknown indication
     Dosage: MELTING TABLET , 5 MG (MILLIGRAM), OXYCODONE MELT TABLET 5MG / OXYNORM INSTANT ORODISP TABLET 5MG
  10. OXYCONTIN [Concomitant]
     Active Substance: OXYCODONE HYDROCHLORIDE
     Indication: Product used for unknown indication
     Dosage: OXYCODON TABLET MGA  10MG / OXYCONTIN TABLET MVA  10MG
  11. INSULINE ASPART [Concomitant]
     Indication: Product used for unknown indication
     Dosage: INJVLST 100E/ML / BRAND NAME NOT SPECIFIED
  12. NITROGLYCERIN [Concomitant]
     Active Substance: NITROGLYCERIN
     Indication: Product used for unknown indication
     Dosage: 0.4 MG/DOSE (MILLIGRAM PER DOSE),   BRAND NAME NOT SPECIFIED
  13. IRBESARTAN [Concomitant]
     Active Substance: IRBESARTAN
     Indication: Product used for unknown indication
     Dosage: 150 MG (MILLIGRAM),  BRAND NAME NOT SPECIFIED

REACTIONS (3)
  - Rhabdomyolysis [Unknown]
  - Hyperkalaemia [Unknown]
  - Drug interaction [Unknown]

NARRATIVE: CASE EVENT DATE: 20230419
